FAERS Safety Report 9442452 (Version 1)
Quarter: 2013Q3

REPORT INFORMATION
  Report Type: Spontaneous
  Country: IT (occurrence: IT)
  Receive Date: 20130806
  Receipt Date: 20130806
  Transmission Date: 20140515
  Serious: Yes (Hospitalization)
  Sender: FDA-Public Use
  Company Number: IT-ELI_LILLY_AND_COMPANY-IT201301002693

PATIENT
  Age: 66 Year
  Sex: Male

DRUGS (7)
  1. ALIMTA [Suspect]
     Indication: LUNG ADENOCARCINOMA
     Dosage: 500 MG/M2, EVERY 21 DAYS
     Route: 042
     Dates: start: 20120515, end: 20120808
  2. CARBOPLATIN [Concomitant]
     Dosage: 5 AUC, UNK
     Route: 042
     Dates: start: 20120515, end: 20120808
  3. DOBETIN                            /00056201/ [Concomitant]
     Dosage: 1 DF, EVERY 9 WEEKS
  4. FOLINA                             /00024201/ [Concomitant]
     Dosage: 5 MG, QD
  5. SOLDESAM [Concomitant]
     Dosage: 64 GTT, OTHER
  6. DELTACORTENE [Concomitant]
     Dosage: 12.5 MG, EACH MORNING
  7. OMEPRAZOLE [Concomitant]
     Dosage: 20 MG, EACH MORNING

REACTIONS (8)
  - Hepatotoxicity [Recovered/Resolved]
  - Hepatic failure [Unknown]
  - Hepatitis [Unknown]
  - General physical health deterioration [Unknown]
  - Diabetes mellitus [Unknown]
  - Pancytopenia [Unknown]
  - Electrolyte imbalance [Unknown]
  - Off label use [Unknown]
